FAERS Safety Report 14688851 (Version 1)
Quarter: 2018Q1

REPORT INFORMATION
  Report Type: Spontaneous
  Country: US (occurrence: US)
  Receive Date: 20180328
  Receipt Date: 20180328
  Transmission Date: 20180509
  Serious: No
  Sender: FDA-Public Use
  Company Number: US-BAYER-2018-050949

PATIENT
  Age: 40 Year
  Sex: Male
  Weight: 88 kg

DRUGS (3)
  1. MIRALAX [Suspect]
     Active Substance: POLYETHYLENE GLYCOL 3350
     Indication: SURGERY
  2. MIRALAX [Suspect]
     Active Substance: POLYETHYLENE GLYCOL 3350
     Indication: FREQUENT BOWEL MOVEMENTS
     Dosage: UNK
     Route: 048
  3. DULCOLAX PICOSULFAT [Concomitant]
     Active Substance: SODIUM PICOSULFATE

REACTIONS (4)
  - Circumstance or information capable of leading to medication error [Unknown]
  - Off label use [Unknown]
  - Product use in unapproved indication [Unknown]
  - Product prescribing issue [Unknown]

NARRATIVE: CASE EVENT DATE: 201803
